FAERS Safety Report 25415930 (Version 3)
Quarter: 2025Q3

REPORT INFORMATION
  Report Type: Spontaneous
  Country: JP (occurrence: JP)
  Receive Date: 20250610
  Receipt Date: 20250721
  Transmission Date: 20251020
  Serious: Yes (Death, Hospitalization, Other)
  Sender: GENMAB
  Company Number: JP-GENMAB-2025-01533

PATIENT
  Sex: Female

DRUGS (3)
  1. EPKINLY [Suspect]
     Active Substance: EPCORITAMAB-BYSP
     Indication: Follicular lymphoma refractory
     Route: 058
     Dates: start: 20250415, end: 20250415
  2. EPKINLY [Suspect]
     Active Substance: EPCORITAMAB-BYSP
     Route: 058
     Dates: start: 20250422, end: 20250422
  3. EPKINLY [Suspect]
     Active Substance: EPCORITAMAB-BYSP
     Route: 058
     Dates: start: 20250429, end: 2025

REACTIONS (6)
  - Follicular lymphoma refractory [Unknown]
  - Immune effector cell-associated neurotoxicity syndrome [Recovered/Resolved]
  - Multiple organ dysfunction syndrome [Fatal]
  - Cerebral infarction [Unknown]
  - Renal disorder [Unknown]
  - Drug ineffective [Fatal]

NARRATIVE: CASE EVENT DATE: 20250101
